FAERS Safety Report 9300314 (Version 3)
Quarter: 2013Q3

REPORT INFORMATION
  Report Type: Report from Study
  Country: US (occurrence: US)
  Receive Date: 20130521
  Receipt Date: 20130913
  Transmission Date: 20140515
  Serious: Yes (Hospitalization, Other)
  Sender: FDA-Public Use
  Company Number: US-PURDUE-USA-2013-0102460

PATIENT
  Sex: Male

DRUGS (2)
  1. OXYCONTIN (NDA 22-272) [Suspect]
     Indication: PAIN
     Dosage: 80 MG, BID
     Route: 048
  2. PERCOCET /00867901/ [Suspect]
     Indication: PRODUCT USED FOR UNKNOWN INDICATION
     Dosage: 10/325 , UNK

REACTIONS (7)
  - Drug dependence [Unknown]
  - Drug abuse [Unknown]
  - Cardiac disorder [Unknown]
  - Gallbladder disorder [Unknown]
  - Renal disorder [Unknown]
  - Intestinal polyp [Unknown]
  - Pain [Recovered/Resolved]
